FAERS Safety Report 10179425 (Version 1)
Quarter: 2014Q2

REPORT INFORMATION
  Report Type: Spontaneous
  Country: US (occurrence: None)
  Receive Date: 20140515
  Receipt Date: 20140515
  Transmission Date: 20141212
  Serious: Yes (Death)
  Sender: FDA-Public Use
  Company Number: FK201401728

PATIENT
  Age: 39 Year
  Sex: Male

DRUGS (3)
  1. METOPROLOL [Suspect]
     Indication: PRODUCT USED FOR UNKNOWN INDICATION
  2. DILTIAZEM [Suspect]
     Indication: PRODUCT USED FOR UNKNOWN INDICATION
  3. LIPID EMULSION [Suspect]
     Indication: TOXICITY TO VARIOUS AGENTS
     Route: 042

REACTIONS (4)
  - Unresponsive to stimuli [None]
  - Toxicity to various agents [None]
  - Hyperlipidaemia [None]
  - Cardiac arrest [None]
